FAERS Safety Report 5119567-3 (Version None)
Quarter: 2006Q3

REPORT INFORMATION
  Report Type: 
  Country: None (occurrence: None)
  Receive Date: 20060929
  Receipt Date: 20060919
  Transmission Date: 20061208
  Serious: Yes (Hospitalization)
  Sender: FDA-Public Use
  Company Number: 2006112658

PATIENT
  Age: 70 Year
  Sex: Male
  Weight: 67.7 kg

DRUGS (10)
  1. VORICONAZOLE (VORICONAZOLE) [Suspect]
     Indication: DRUG USE FOR UNKNOWN INDICATION
  2. ALL OTHER THERAPEUTIC PRODUCTS (ALL OTHER THERAPEUTIC PRODUCTS) [Suspect]
     Indication: ACUTE MYELOID LEUKAEMIA
     Dosage: 1200 MG, ORAL
     Route: 048
     Dates: start: 20030513, end: 20030528
  3. NORFLOXACIN [Concomitant]
  4. VALACYCLOVIR [Concomitant]
  5. GATIFLOXACIN [Concomitant]
  6. ALLOPURINOL [Concomitant]
  7. ATENOLOL [Concomitant]
  8. LEVAQUIN [Concomitant]
  9. PREDNISONE TAB [Concomitant]
  10. VALTREX [Concomitant]

REACTIONS (7)
  - ATRIAL FIBRILLATION [None]
  - CATHETER RELATED COMPLICATION [None]
  - HEPATOTOXICITY [None]
  - HYPERNATRAEMIA [None]
  - HYPOKALAEMIA [None]
  - INDURATION [None]
  - RENAL IMPAIRMENT [None]
